FAERS Safety Report 17560236 (Version 2)
Quarter: 2020Q2

REPORT INFORMATION
  Report Type: Spontaneous
  Country: DE (occurrence: DE)
  Receive Date: 20200319
  Receipt Date: 20200401
  Transmission Date: 20200713
  Serious: Yes (Other)
  Sender: FDA-Public Use
  Company Number: NVSC2020DE076668

PATIENT
  Age: 15 Year
  Sex: Male

DRUGS (22)
  1. CYCLOPHOSPHAMIDE. [Suspect]
     Active Substance: CYCLOPHOSPHAMIDE
     Indication: BONE MARROW CONDITIONING REGIMEN
     Dosage: 50 MG/KG, QD (DAY +3 AND +4)
     Route: 065
  2. CYCLOPHOSPHAMIDE. [Suspect]
     Active Substance: CYCLOPHOSPHAMIDE
     Indication: GRAFT VERSUS HOST DISEASE
  3. TREOSULFAN [Suspect]
     Active Substance: TREOSULFAN
     Indication: PROPHYLAXIS AGAINST TRANSPLANT REJECTION
  4. CYCLOPHOSPHAMIDE. [Suspect]
     Active Substance: CYCLOPHOSPHAMIDE
     Indication: PROPHYLAXIS AGAINST GRAFT VERSUS HOST DISEASE
     Dosage: 14.5 MG/KG, QD; (DAY -3 TO -2)
     Route: 065
  5. THIOTEPA. [Suspect]
     Active Substance: THIOTEPA
     Indication: BONE MARROW CONDITIONING REGIMEN
     Dosage: 5 MG/KG; DAY 4
     Route: 065
  6. TREOSULFAN [Suspect]
     Active Substance: TREOSULFAN
     Indication: THALASSAEMIA
     Dosage: 14 G/M2, QD (DAY 7 TO 5)
     Route: 065
  7. FLUDARABINE PHOSPHATE. [Suspect]
     Active Substance: FLUDARABINE PHOSPHATE
     Indication: THALASSAEMIA
     Dosage: 150 MG/M2, QD; (ON DAYS -7 TO -3)
     Route: 065
  8. FLUDARABINE PHOSPHATE. [Suspect]
     Active Substance: FLUDARABINE PHOSPHATE
     Indication: PROPHYLAXIS AGAINST TRANSPLANT REJECTION
  9. G-CSF [Concomitant]
     Active Substance: GRANULOCYTE COLONY-STIMULATING FACTOR NOS
     Indication: PRODUCT USED FOR UNKNOWN INDICATION
     Dosage: 5 UG/KG, QD
     Route: 065
  10. RITUXIMAB. [Suspect]
     Active Substance: RITUXIMAB
     Indication: SICKLE CELL DISEASE
     Dosage: UNK
     Route: 065
  11. ALEMTUZUMAB [Suspect]
     Active Substance: ALEMTUZUMAB
     Indication: BONE MARROW CONDITIONING REGIMEN
     Dosage: 0.2 MG/KG, BID; (DAYS -9 AND -8)
     Route: 065
  12. TACROLIMUS. [Suspect]
     Active Substance: TACROLIMUS
     Indication: PROPHYLAXIS AGAINST TRANSPLANT REJECTION
  13. MYCOPHENOLATE MOFETIL. [Suspect]
     Active Substance: MYCOPHENOLATE MOFETIL
     Indication: PROPHYLAXIS AGAINST GRAFT VERSUS HOST DISEASE
     Dosage: 15 MG/KG, TID; PO OR IV; DAYS +5 TO +100
     Route: 065
  14. CYCLOPHOSPHAMIDE. [Suspect]
     Active Substance: CYCLOPHOSPHAMIDE
     Indication: THALASSAEMIA
  15. FLUDARABINE PHOSPHATE. [Suspect]
     Active Substance: FLUDARABINE PHOSPHATE
     Indication: BONE MARROW CONDITIONING REGIMEN
  16. TACROLIMUS. [Suspect]
     Active Substance: TACROLIMUS
     Indication: PROPHYLAXIS AGAINST GRAFT VERSUS HOST DISEASE
     Dosage: UNK (PO AND IV(DAY +5 TO +100 WITH CONSECUTIVE TAPERING)
     Route: 065
  17. ALEMTUZUMAB [Suspect]
     Active Substance: ALEMTUZUMAB
     Indication: THALASSAEMIA
  18. MYCOPHENOLATE MOFETIL. [Suspect]
     Active Substance: MYCOPHENOLATE MOFETIL
     Indication: PROPHYLAXIS AGAINST TRANSPLANT REJECTION
  19. ALEMTUZUMAB [Suspect]
     Active Substance: ALEMTUZUMAB
     Indication: PROPHYLAXIS AGAINST TRANSPLANT REJECTION
  20. TREOSULFAN [Suspect]
     Active Substance: TREOSULFAN
     Indication: BONE MARROW CONDITIONING REGIMEN
     Dosage: 3 X 14 G/M2/D (DAYS -7 TO -5)
     Route: 065
  21. THIOTEPA. [Suspect]
     Active Substance: THIOTEPA
     Indication: THALASSAEMIA
  22. THIOTEPA. [Suspect]
     Active Substance: THIOTEPA
     Indication: PROPHYLAXIS AGAINST TRANSPLANT REJECTION

REACTIONS (2)
  - Cytomegalovirus infection reactivation [Unknown]
  - Off label use [Unknown]
